FAERS Safety Report 4596438-2 (Version None)
Quarter: 2005Q1

REPORT INFORMATION
  Report Type: 
  Country: None (occurrence: None)
  Receive Date: 20050228
  Receipt Date: 20050215
  Transmission Date: 20050727
  Serious: Yes (Hospitalization)
  Sender: FDA-Public Use
  Company Number: 2005032295

PATIENT
  Age: 54 Year
  Sex: Male

DRUGS (4)
  1. NORVASC [Suspect]
     Indication: ESSENTIAL HYPERTENSION
     Dosage: 2.5 MG, ORAL
     Route: 048
     Dates: start: 20041222, end: 20050204
  2. VALSARTAN (VALSARTAN) [Suspect]
     Indication: ESSENTIAL HYPERTENSION
     Dosage: ORAL
     Route: 048
     Dates: start: 20050116, end: 20050204
  3. VALISONE-G (BETAMETHASONE VALERATE, GENTAMICIN SULFATE) [Concomitant]
  4. DIPHENHYDRAMINE (DIPHENHYDRAMINE) [Concomitant]

REACTIONS (1)
  - CEREBRAL INFARCTION [None]
